FAERS Safety Report 5057599-4 (Version None)
Quarter: 2006Q3

REPORT INFORMATION
  Report Type: 
  Country: None (occurrence: None)
  Receive Date: 20060721
  Receipt Date: 20051213
  Transmission Date: 20061208
  Serious: No
  Sender: FDA-Public Use
  Company Number: US-GLAXOSMITHKLINE-A0585699A

PATIENT
  Age: 73 Year
  Sex: Male

DRUGS (8)
  1. AVANDIA [Suspect]
     Dosage: 2MG PER DAY
     Route: 048
     Dates: start: 20051209
  2. GLIMEPIRIDE [Concomitant]
  3. WELLBUTRIN XL [Concomitant]
  4. ASPIRIN [Concomitant]
     Indication: PROPHYLAXIS
  5. CENTRUM SILVER [Concomitant]
  6. PROSCAR [Concomitant]
  7. XALATAN [Concomitant]
  8. AMITRIPTYLINE HCL [Concomitant]

REACTIONS (1)
  - DRUG INEFFECTIVE [None]
